FAERS Safety Report 5376863-2 (Version None)
Quarter: 2007Q2

REPORT INFORMATION
  Report Type: 
  Country: None (occurrence: None)
  Receive Date: 20070628
  Receipt Date: 20070628
  Transmission Date: 20071010
  Serious: Yes (Other)
  Sender: FDA-Public Use
  Company Number: None

PATIENT
  Age: 61 Year
  Sex: Male
  Weight: 70.3075 kg

DRUGS (2)
  1. AMLODIPINE [Suspect]
     Indication: ANGINA PECTORIS
     Dosage: 5 MG QD
     Dates: start: 20070101, end: 20070301
  2. AMLODIPINE [Suspect]
     Indication: HYPERTENSION
     Dosage: 5 MG QD
     Dates: start: 20070101, end: 20070301

REACTIONS (2)
  - PALPITATIONS [None]
  - PHARMACEUTICAL PRODUCT COMPLAINT [None]
